FAERS Safety Report 14207678 (Version 1)
Quarter: 2017Q4

REPORT INFORMATION
  Report Type: Spontaneous
  Country: FR (occurrence: FR)
  Receive Date: 20171121
  Receipt Date: 20171121
  Transmission Date: 20180321
  Serious: Yes (Disabling)
  Sender: FDA-Public Use
  Company Number: FR-MERCK KGAA-2034730

PATIENT
  Age: 51 Year
  Sex: Female

DRUGS (8)
  1. DEROXAT(PAROXETINE HYDROCHLORIDE) [Concomitant]
  2. NOVOTHYROX [Suspect]
     Active Substance: LEVOTHYROXINE SODIUM
     Indication: AUTOIMMUNE THYROIDITIS
     Dates: start: 2017
  3. NOVOTHYROX [Suspect]
     Active Substance: LEVOTHYROXINE SODIUM
     Indication: GOITRE
     Dates: start: 2017
  4. VIVELLEDOT(ESTRADIOL) [Concomitant]
  5. ESTIMA GE(PROGESTERONE) [Concomitant]
  6. SPASFON [Concomitant]
     Active Substance: PHLOROGLUCINOL\1,3,5-TRIMETHOXYBENZENE
  7. LYSANXIA [Concomitant]
     Active Substance: PRAZEPAM
  8. INEXIUM [Concomitant]
     Active Substance: ESOMEPRAZOLE

REACTIONS (16)
  - Cerebral disorder [Not Recovered/Not Resolved]
  - Asthenia [Not Recovered/Not Resolved]
  - Disturbance in attention [Not Recovered/Not Resolved]
  - Balance disorder [Not Recovered/Not Resolved]
  - Gastrointestinal disorder [Not Recovered/Not Resolved]
  - Crying [Not Recovered/Not Resolved]
  - Feeling cold [Not Recovered/Not Resolved]
  - Hot flush [Not Recovered/Not Resolved]
  - Abdominal discomfort [Not Recovered/Not Resolved]
  - Nausea [Not Recovered/Not Resolved]
  - Vertigo [Not Recovered/Not Resolved]
  - Loss of libido [Not Recovered/Not Resolved]
  - Alopecia [Not Recovered/Not Resolved]
  - Palpitations [Not Recovered/Not Resolved]
  - Weight decreased [Not Recovered/Not Resolved]
  - Headache [Not Recovered/Not Resolved]

NARRATIVE: CASE EVENT DATE: 201708
